FAERS Safety Report 8487194-6 (Version None)
Quarter: 2012Q3

REPORT INFORMATION
  Report Type: 
  Country: None (occurrence: None)
  Receive Date: 20120705
  Receipt Date: 20120620
  Transmission Date: 20120928
  Serious: Yes (Hospitalization)
  Sender: FDA-Public Use
  Company Number: DE-ROCHE-1054590

PATIENT
  Sex: Female
  Weight: 56 kg

DRUGS (5)
  1. CARBOPLATIN [Suspect]
     Indication: BREAST CANCER
     Dosage: DOSE: 2 AUC, LAST DOSE: 11 JUN 2012
     Route: 042
     Dates: start: 20120202
  2. HERCEPTIN [Suspect]
     Indication: BREAST CANCER
     Dosage: LAST DOSE: 18-MAY-2012
     Route: 042
     Dates: start: 20120202
  3. LAPATINIB [Suspect]
     Indication: BREAST CANCER
     Dosage: FREQUENCY: DAILY, LAST DOSE PRIOR TO SAE:18 JUN 2012
     Route: 048
     Dates: start: 20120202
  4. PACLITAXEL [Suspect]
     Indication: BREAST CANCER
     Dosage: LAST DOSE: 11 JUN 2012
     Route: 042
     Dates: start: 20120202
  5. DOXORUBICIN HCL [Suspect]
     Indication: BREAST CANCER
     Dosage: LAST DOSE: 11 JUN 2012
     Route: 042
     Dates: start: 20120202

REACTIONS (2)
  - ANAEMIA [None]
  - PANCYTOPENIA [None]
